FAERS Safety Report 8421836-6 (Version None)
Quarter: 2012Q2

REPORT INFORMATION
  Report Type: 
  Country: None (occurrence: None)
  Receive Date: 20120323
  Receipt Date: 20111215
  Transmission Date: 20120825
  Serious: Yes (Disabling)
  Sender: FDA-Public Use
  Company Number: 163-21880-11122199

PATIENT
  Age: 84 Year
  Sex: Male
  Weight: 81 kg

DRUGS (3)
  1. REVLIMID [Suspect]
     Indication: MULTIPLE MYELOMA
     Dosage: 15 MG, DAILY X 21 DAYS, PO ; 10MG-15MG, DAILY, PO ; 10 MG, 1 IN 1 D, PO
     Route: 048
     Dates: start: 20081101
  2. REVLIMID [Suspect]
     Indication: MULTIPLE MYELOMA
     Dosage: 15 MG, DAILY X 21 DAYS, PO ; 10MG-15MG, DAILY, PO ; 10 MG, 1 IN 1 D, PO
     Route: 048
     Dates: start: 20071201
  3. REVLIMID [Suspect]
     Indication: MULTIPLE MYELOMA
     Dosage: 15 MG, DAILY X 21 DAYS, PO ; 10MG-15MG, DAILY, PO ; 10 MG, 1 IN 1 D, PO
     Route: 048
     Dates: start: 20110801

REACTIONS (1)
  - BONE MARROW TOXICITY [None]
